FAERS Safety Report 5674037-9 (Version None)
Quarter: 2008Q1

REPORT INFORMATION
  Report Type: 
  Country: None (occurrence: None)
  Receive Date: 20080319
  Receipt Date: 20080319
  Transmission Date: 20080703
  Serious: Yes (Hospitalization)
  Sender: FDA-Public Use
  Company Number: None

PATIENT
  Age: 46 Year
  Sex: Female

DRUGS (8)
  1. WARFARIN SODIUM [Suspect]
     Indication: PULMONARY EMBOLISM
     Dosage: 5-15 MG (VARIED) DAILY PO
     Route: 048
     Dates: start: 20071113, end: 20071124
  2. LEVAQUIN [Suspect]
     Dosage: DAILY PO
     Route: 048
  3. ENOXAPARIN SODIUM [Concomitant]
  4. LEVOFLOXACIN [Concomitant]
  5. MORPHINE [Concomitant]
  6. PHENERGAN HCL [Concomitant]
  7. MOM [Concomitant]
  8. ZANTAC [Concomitant]

REACTIONS (3)
  - INCISION SITE HAEMATOMA [None]
  - INCISION SITE HAEMORRHAGE [None]
  - INTERNATIONAL NORMALISED RATIO INCREASED [None]
